FAERS Safety Report 15641990 (Version 5)
Quarter: 2021Q3

REPORT INFORMATION
  Report Type: Spontaneous
  Country: GB (occurrence: GB)
  Receive Date: 20181121
  Receipt Date: 20210706
  Transmission Date: 20211014
  Serious: Yes (Other)
  Sender: FDA-Public Use
  Company Number: GB-AUROBINDO-AUR-APL-2011-05756

PATIENT
  Sex: Female

DRUGS (6)
  1. MIRTAZAPINE FILM?COATED TABLETS 15MG [Suspect]
     Active Substance: MIRTAZAPINE
     Dosage: TREATMENT LASTED FOR A FEW DAYS
     Route: 048
  2. SERTRALINE FILM?COATED TABLETS 50MG [Suspect]
     Active Substance: SERTRALINE HYDROCHLORIDE
     Indication: PRODUCT USED FOR UNKNOWN INDICATION
     Dosage: UNK,TREATMENT LASTED FOR A FEW DAYS
     Route: 048
  3. AMLODIPINE [Concomitant]
     Active Substance: AMLODIPINE BESYLATE
     Indication: HYPERTENSION
     Dosage: 10 MILLIGRAM, ONCE A DAY
     Route: 048
  4. AMLODIPINE [Concomitant]
     Active Substance: AMLODIPINE BESYLATE
     Dosage: 10 MILLIGRAM
     Route: 048
  5. MIRTAZAPINE FILM?COATED TABLETS 15MG [Suspect]
     Active Substance: MIRTAZAPINE
     Indication: PRODUCT USED FOR UNKNOWN INDICATION
     Dosage: UNK,  TREATMENT LASTED FOR A FEW DAYS
     Route: 048
  6. AMLODIPINE [Concomitant]
     Active Substance: AMLODIPINE BESYLATE
     Dosage: 10 MILLIGRAM, ONCE A DAY (10 MG AND AND 11 DAYS)
     Route: 048

REACTIONS (1)
  - Pain in extremity [Not Recovered/Not Resolved]
